FAERS Safety Report 23068097 (Version 2)
Quarter: 2023Q4

REPORT INFORMATION
  Report Type: Spontaneous
  Country: DE (occurrence: DE)
  Receive Date: 20231016
  Receipt Date: 20231017
  Transmission Date: 20240110
  Serious: Yes (Other)
  Sender: FDA-Public Use
  Company Number: DE-SANDOZ-SDZ2023DE010282

PATIENT
  Age: 72 Year

DRUGS (1)
  1. TRIAMCINOLONE [Suspect]
     Active Substance: TRIAMCINOLONE
     Indication: Pain
     Dosage: UNK
     Route: 065

REACTIONS (13)
  - Lipoma [Unknown]
  - Joint instability [Unknown]
  - Condition aggravated [Unknown]
  - Granuloma [Unknown]
  - Neuralgia [Unknown]
  - Immune-mediated adverse reaction [Unknown]
  - Delusion [Unknown]
  - Fat necrosis [Unknown]
  - Bone marrow granuloma [Unknown]
  - Synovial cyst [Unknown]
  - Burning sensation [Unknown]
  - Arthralgia [Unknown]
  - Drug ineffective [Unknown]
